FAERS Safety Report 7099682-8 (Version None)
Quarter: 2010Q4

REPORT INFORMATION
  Report Type: 
  Country: None (occurrence: None)
  Receive Date: 20101112
  Receipt Date: 20101109
  Transmission Date: 20110411
  Serious: Yes (Death)
  Sender: FDA-Public Use
  Company Number: JP-SANOFI-AVENTIS-2010SA068088

PATIENT
  Age: 39 Year
  Sex: Female

DRUGS (2)
  1. TAXOTERE [Suspect]
     Route: 051
     Dates: start: 20100914, end: 20100914
  2. TRASTUZUMAB [Concomitant]
     Dates: start: 20100914, end: 20100914

REACTIONS (1)
  - DEATH [None]
